FAERS Safety Report 5950208-9 (Version None)
Quarter: 2008Q4

REPORT INFORMATION
  Report Type: 
  Country: None (occurrence: None)
  Receive Date: 20081112
  Receipt Date: 20081106
  Transmission Date: 20090506
  Serious: Yes (Hospitalization)
  Sender: FDA-Public Use
  Company Number: B0530477A

PATIENT
  Age: 44 Year
  Sex: Male

DRUGS (5)
  1. PAXIL [Suspect]
     Indication: DEPRESSION
     Route: 048
     Dates: start: 20060901
  2. MEDICON [Suspect]
     Indication: DRUG USE FOR UNKNOWN INDICATION
     Dosage: 15MG THREE TIMES PER DAY
     Route: 048
     Dates: end: 20080616
  3. ALPRAZOLAM [Concomitant]
     Indication: IRRITABILITY
     Dosage: 1.2MG PER DAY
     Route: 048
     Dates: start: 20080601, end: 20080618
  4. SOLANTAL [Concomitant]
     Route: 048
     Dates: end: 20080616
  5. UNKNOWN DRUG [Concomitant]
     Route: 048
     Dates: start: 20080609, end: 20080611

REACTIONS (3)
  - ALTERED STATE OF CONSCIOUSNESS [None]
  - PSYCHOMOTOR HYPERACTIVITY [None]
  - SUICIDE ATTEMPT [None]
